FAERS Safety Report 18529712 (Version 2)
Quarter: 2020Q4

REPORT INFORMATION
  Report Type: Spontaneous
  Country: US (occurrence: US)
  Receive Date: 20201120
  Receipt Date: 20201214
  Transmission Date: 20210114
  Serious: Yes (Hospitalization)
  Sender: FDA-Public Use
  Company Number: US-NOVOPROD-731574

PATIENT
  Age: 67 Year
  Sex: Female

DRUGS (5)
  1. NOVOLOG [Suspect]
     Active Substance: INSULIN ASPART
     Indication: TYPE 1 DIABETES MELLITUS
     Dosage: 4-12 UNITS THREE TIMES A DAY AS DIRECTED
     Route: 058
  2. NOVOLOG [Suspect]
     Active Substance: INSULIN ASPART
     Dosage: 4-12 UNITS THREE TIMES A DAY AS DIRECTED
     Route: 058
  3. NOVOLOG [Suspect]
     Active Substance: INSULIN ASPART
     Dosage: 4-12 UNITS THREE TIMES A DAY AS DIRECTED
     Route: 058
  4. LEVEMIR [Suspect]
     Active Substance: INSULIN DETEMIR
     Indication: TYPE 1 DIABETES MELLITUS
     Dosage: 35 IU, BID
     Route: 058
  5. NOVOLOG [Suspect]
     Active Substance: INSULIN ASPART
     Dosage: 4-12 UNITS THREE TIMES A DAY AS DIRECTED
     Route: 058

REACTIONS (4)
  - Blood glucose increased [Unknown]
  - Illness [Unknown]
  - Drug ineffective [Unknown]
  - Product quality issue [Unknown]
